FAERS Safety Report 16155977 (Version 1)
Quarter: 2019Q2

REPORT INFORMATION
  Report Type: Spontaneous
  Country: US (occurrence: US)
  Receive Date: 20190404
  Receipt Date: 20190404
  Transmission Date: 20190711
  Serious: No
  Sender: FDA-Public Use
  Company Number: US-AMGEN-USASP2019046787

PATIENT
  Age: 51 Year
  Sex: Female

DRUGS (3)
  1. VITAMIN D3 [Concomitant]
     Active Substance: CHOLECALCIFEROL
     Dosage: UNK
  2. PROLIA [Suspect]
     Active Substance: DENOSUMAB
     Indication: PRODUCT USED FOR UNKNOWN INDICATION
     Dosage: UNK
     Route: 065
     Dates: start: 20190228
  3. CALCIUM [Concomitant]
     Active Substance: CALCIUM
     Dosage: UNK

REACTIONS (25)
  - Feeling abnormal [Unknown]
  - Hot flush [Unknown]
  - Vision blurred [Not Recovered/Not Resolved]
  - Mass [Unknown]
  - Respiration abnormal [Unknown]
  - Hypoaesthesia [Unknown]
  - Swollen tongue [Unknown]
  - Abdominal pain upper [Unknown]
  - Arthralgia [Not Recovered/Not Resolved]
  - Pain [Not Recovered/Not Resolved]
  - Hyperhidrosis [Unknown]
  - Nausea [Unknown]
  - Cold sweat [Unknown]
  - Myalgia [Unknown]
  - Migraine [Recovered/Resolved]
  - Chest pain [Unknown]
  - Glassy eyes [Unknown]
  - Swelling face [Unknown]
  - Pain in extremity [Not Recovered/Not Resolved]
  - Gastrooesophageal reflux disease [Unknown]
  - Gingival swelling [Recovered/Resolved]
  - Muscle spasms [Unknown]
  - Tremor [Unknown]
  - Dysphonia [Unknown]
  - Bone pain [Unknown]

NARRATIVE: CASE EVENT DATE: 201903
